FAERS Safety Report 5951151-1 (Version None)
Quarter: 2008Q4

REPORT INFORMATION
  Report Type: 
  Country: None (occurrence: None)
  Receive Date: 20081112
  Receipt Date: 20081112
  Transmission Date: 20090506
  Serious: Yes (Other)
  Sender: FDA-Public Use
  Company Number: None

PATIENT
  Sex: Female
  Weight: 49.4421 kg

DRUGS (5)
  1. ALENDRONATE SODIUM [Suspect]
     Indication: BONE DENSITY DECREASED
     Dosage: 1 TABLET ONCE WEEKLY PO
     Route: 048
  2. ALENDRONATE SODIUM [Suspect]
     Indication: MENOPAUSE
     Dosage: 1 TABLET ONCE WEEKLY PO
     Route: 048
  3. MORPHINE SULFATE [Concomitant]
  4. MS CONTIN [Concomitant]
  5. CLONAZEPAM [Concomitant]

REACTIONS (3)
  - ARTHRALGIA [None]
  - BONE PAIN [None]
  - MYALGIA [None]
